FAERS Safety Report 8355858-0 (Version None)
Quarter: 2012Q2

REPORT INFORMATION
  Report Type: 
  Country: None (occurrence: None)
  Receive Date: 20120510
  Receipt Date: 20120427
  Transmission Date: 20120825
  Serious: Yes (Hospitalization)
  Sender: FDA-Public Use
  Company Number: AUR-APL-2012-02023

PATIENT
  Age: 44 Year
  Sex: Female

DRUGS (4)
  1. DIVALPROEX SODIUM [Suspect]
     Indication: PRODUCT USED FOR UNKNOWN INDICATION
     Dosage: (2500 MG,1 D)
  2. CINACALCET HYDROCHLORIDE [Concomitant]
  3. LEVOCARNITINE [Suspect]
     Indication: PRODUCT USED FOR UNKNOWN INDICATION
     Dosage: 1980 MG (990 MG,2 IN 1 D)
  4. CALCIUM ACETATE [Suspect]
     Indication: PRODUCT USED FOR UNKNOWN INDICATION
     Dosage: 2001 MG (667 MG,3 IN 1 D)

REACTIONS (6)
  - HYPOPHOSPHATAEMIA [None]
  - TOXICITY TO VARIOUS AGENTS [None]
  - ASTHENIA [None]
  - VITAMIN D DEFICIENCY [None]
  - HYPOCALCAEMIA [None]
  - ENCEPHALOPATHY [None]
